FAERS Safety Report 6592738-5 (Version None)
Quarter: 2010Q1

REPORT INFORMATION
  Report Type: 
  Country: None (occurrence: None)
  Receive Date: 20100212
  Receipt Date: 20100125
  Transmission Date: 20100710
  Serious: Yes (Hospitalization)
  Sender: FDA-Public Use
  Company Number: IDA-00327

PATIENT
  Age: 42 Year
  Sex: Male

DRUGS (13)
  1. PROPRANOLOL [Suspect]
     Dosage: ORAL FORMULATION: TABLET
     Route: 048
  2. ABILIFY [Suspect]
     Dosage: ORAL FORMULATION: TABLET
     Route: 048
     Dates: start: 20070101, end: 20090105
  3. FENOFIBRATE [Suspect]
     Dosage: 1 DF; ORAL FORMULATION: TABLET
     Route: 048
     Dates: end: 20090115
  4. MEDIATOR (BENFLUOREX HYDROCHLORIDE)Q [Suspect]
     Dosage: 150 MG TID; ORAL FORMULATION: TABLET
     Route: 048
     Dates: end: 20090115
  5. EUPANTOL (PANTOPRAZOLE) [Suspect]
     Dosage: 40 MG DAILY; ORAL FORMULATOON: TABLET
     Route: 048
     Dates: end: 20090115
  6. IXPRIM (PARACETAMOL, TRAMADOL) [Suspect]
     Dosage: 2 DF DAILY; ORAL FORMULATION: TABLET
     Route: 048
     Dates: start: 19960101
  7. MEPRONIZINE (ACEPROMETAZINE, MEPROBAMATE) [Suspect]
     Dosage: 2 DF DAILY; ORAL FORMULATION
     Route: 048
  8. TAMSULOSIN HCL [Suspect]
     Dosage: 1 DF DAILY; ORAL FORMULATION
     Route: 048
  9. IMPORTAL (LACITOL) [Suspect]
     Dosage: 2 DF DAILY; ORAL FORMULATION
     Route: 048
     Dates: end: 20090115
  10. TRANXENE [Suspect]
     Dosage: 3 DF DAILY; ORAL FORMULATION
     Route: 048
  11. IMOVANE (ZOPICLONE) [Suspect]
     Dosage: 2 DF DAILY; ORAL FORMULATION: TABLET
     Route: 048
  12. AMITRIPTYLINE HYDROCHLORIDE [Suspect]
     Dosage: 4 DF DAILY; ORAL FORMULATION: TABLET
     Route: 048
  13. MYCOSTER (CICLOPIROX OLAMINE) [Concomitant]

REACTIONS (3)
  - ATELECTASIS [None]
  - PANCREATIC NECROSIS [None]
  - PANCREATITIS ACUTE [None]
